FAERS Safety Report 6634822-3 (Version None)
Quarter: 2010Q1

REPORT INFORMATION
  Report Type: 
  Country: None (occurrence: None)
  Receive Date: 20100315
  Receipt Date: 20100305
  Transmission Date: 20100710
  Serious: Yes (Other)
  Sender: FDA-Public Use
  Company Number: FR-MERCK-1003FRA00017

PATIENT
  Age: 74 Year
  Sex: Male

DRUGS (1)
  1. ZOCOR [Suspect]
     Indication: HYPERCHOLESTEROLAEMIA
     Route: 048
     Dates: start: 20050101, end: 20090101

REACTIONS (3)
  - NEURALGIA [None]
  - RASH ERYTHEMATOUS [None]
  - SYSTEMIC LUPUS ERYTHEMATOSUS [None]
